FAERS Safety Report 19608573 (Version 1)
Quarter: 2021Q3

REPORT INFORMATION
  Report Type: Spontaneous
  Country: US (occurrence: US)
  Receive Date: 20210721
  Receipt Date: 20210721
  Transmission Date: 20211014
  Serious: No
  Sender: FDA-Public Use
  Company Number: None

PATIENT

DRUGS (1)
  1. LEVOCARNITINE. [Suspect]
     Active Substance: LEVOCARNITINE
     Route: 048

REACTIONS (6)
  - Circumstance or information capable of leading to medication error [None]
  - Product administration error [None]
  - Product barcode issue [None]
  - Packaging design issue [None]
  - Product use complaint [None]
  - Physical product label issue [None]
